FAERS Safety Report 14770327 (Version 1)
Quarter: 2018Q2

REPORT INFORMATION
  Report Type: Spontaneous
  Country: US (occurrence: US)
  Receive Date: 20180411
  Receipt Date: 20180411
  Transmission Date: 20180711
  Serious: Yes (Hospitalization)
  Sender: FDA-Public Use
  Company Number: None

PATIENT
  Age: 64 Year
  Sex: Male
  Weight: 111.8 kg

DRUGS (1)
  1. SAXAGLIPTIN [Suspect]
     Active Substance: SAXAGLIPTIN
     Indication: PANCREATITIS ACUTE
     Route: 048
     Dates: start: 20160627, end: 20160923

REACTIONS (2)
  - Pancreatitis acute [None]
  - Abdominal pain [None]

NARRATIVE: CASE EVENT DATE: 20160914
